FAERS Safety Report 19938944 (Version 2)
Quarter: 2021Q4

REPORT INFORMATION
  Report Type: Other
  Country: KR (occurrence: KR)
  Receive Date: 20211011
  Receipt Date: 20211015
  Transmission Date: 20220303
  Serious: Yes (Other)
  Sender: FDA-Public Use
  Company Number: KR-ROCHE-2930958

PATIENT

DRUGS (3)
  1. ATEZOLIZUMAB [Suspect]
     Active Substance: ATEZOLIZUMAB
     Indication: Small cell lung cancer extensive stage
     Dosage: 1200 MG, ADMINISTERED INTRAVENOUSLY ON DAY 1 OF EACH CYCLE. FOLLOWED BY ATEZOLIZUMAB MAINTENANCE EVE
     Route: 042
  2. CARBOPLATIN [Suspect]
     Active Substance: CARBOPLATIN
     Indication: Small cell lung cancer extensive stage
     Dosage: AREA UNDER THE CURVE OF 5 MG ML-1 MIN-1, ADMINISTERED INTRAVENOUSLY ON DAY 1 OF EACH CYCLE
     Route: 042
  3. ETOPOSIDE [Suspect]
     Active Substance: ETOPOSIDE
     Indication: Small cell lung cancer extensive stage
     Dosage: 100 MG/M2 BODY SURFACE AREA, ADMINISTERED INTRAVENOUSLY ON DAYS 1 THROUGH 3 OF EACH CYCLE
     Route: 042

REACTIONS (22)
  - Neutropenia [Unknown]
  - Pneumonitis [Unknown]
  - Hyperglycaemic hyperosmolar nonketotic syndrome [Unknown]
  - Aspartate aminotransferase increased [Unknown]
  - Anaemia [Unknown]
  - Fatigue [Unknown]
  - Thrombocytopenia [Unknown]
  - Constipation [Unknown]
  - Febrile neutropenia [Unknown]
  - Colitis [Unknown]
  - Adrenal insufficiency [Unknown]
  - Pneumonia [Unknown]
  - Decreased appetite [Unknown]
  - Nausea [Unknown]
  - Vomiting [Unknown]
  - Alopecia [Unknown]
  - Pruritus [Unknown]
  - Rash [Unknown]
  - Diarrhoea [Unknown]
  - Hypothyroidism [Unknown]
  - Alanine aminotransferase increased [Unknown]
  - Blood creatinine increased [Unknown]
